FAERS Safety Report 12592181 (Version 1)
Quarter: 2016Q3

REPORT INFORMATION
  Report Type: Spontaneous
  Country: US (occurrence: US)
  Receive Date: 20160726
  Receipt Date: 20160726
  Transmission Date: 20161109
  Serious: No
  Sender: FDA-Public Use
  Company Number: US-TEVA-587677USA

PATIENT
  Age: 66 Year
  Sex: Male
  Weight: 87.62 kg

DRUGS (1)
  1. METOCLOPRAMIDE. [Suspect]
     Active Substance: METOCLOPRAMIDE
     Indication: COLONOSCOPY
     Route: 065
     Dates: start: 20150817, end: 20150818

REACTIONS (4)
  - Feeling abnormal [Unknown]
  - Abdominal discomfort [Unknown]
  - Abdominal pain upper [Unknown]
  - Abdominal distension [Unknown]

NARRATIVE: CASE EVENT DATE: 201508
